FAERS Safety Report 9173476 (Version 1)
Quarter: 2013Q1

REPORT INFORMATION
  Report Type: Spontaneous
  Country: GB (occurrence: None)
  Receive Date: 20130314
  Receipt Date: 20130314
  Transmission Date: 20140127
  Serious: Yes (Other)
  Sender: FDA-Public Use
  Company Number: 2013-03591

PATIENT
  Age: 34 Year
  Sex: Male
  Weight: 50 kg

DRUGS (6)
  1. LAMOTRIGINE [Suspect]
     Indication: EPILEPSY
     Route: 048
     Dates: start: 20130101
  2. MONTELUKAST [Concomitant]
  3. SERETIDE (FLUTICASONE PROPIONATE, SALMETEROL XINFOATE) [Concomitant]
  4. SALBUTAMOL (SALBUTAMOL) [Concomitant]
  5. PREDNISOLONE (PREDNISOLONE) [Concomitant]
  6. PARACETAMOL (PARACETAMOL) [Concomitant]

REACTIONS (4)
  - Insomnia [None]
  - Ataxia [None]
  - Mood swings [None]
  - Activities of daily living impaired [None]
